FAERS Safety Report 25567541 (Version 1)
Quarter: 2025Q3

REPORT INFORMATION
  Report Type: Spontaneous
  Country: US (occurrence: None)
  Receive Date: 20250716
  Receipt Date: 20250716
  Transmission Date: 20251020
  Serious: Yes (Hospitalization)
  Sender: FDA-CTU
  Company Number: None

PATIENT
  Sex: Male

DRUGS (4)
  1. ABILIFY MAINTENA [Suspect]
     Active Substance: ARIPIPRAZOLE
     Indication: Product used for unknown indication
     Dosage: FREQUENCY : MONTHLY;?
  2. HALDOL [Suspect]
     Active Substance: HALOPERIDOL
  3. ATIVAN [Suspect]
     Active Substance: LORAZEPAM
  4. BENADRYL [Suspect]
     Active Substance: DIPHENHYDRAMINE HYDROCHLORIDE

REACTIONS (4)
  - Myalgia [None]
  - Muscle disorder [None]
  - Pain in extremity [None]
  - Injection site reaction [None]
